FAERS Safety Report 19961244 (Version 3)
Quarter: 2021Q4

REPORT INFORMATION
  Report Type: Report from Study
  Country: RU (occurrence: RU)
  Receive Date: 20211016
  Receipt Date: 20211118
  Transmission Date: 20220303
  Serious: Yes (Hospitalization)
  Sender: FDA-Public Use
  Company Number: RU-BAYER-2021A230465

PATIENT

DRUGS (4)
  1. EYLEA [Suspect]
     Active Substance: AFLIBERCEPT
     Indication: Neovascular age-related macular degeneration
     Dosage: 0.03 ML
     Route: 031
     Dates: start: 20210630, end: 20210630
  2. EYLEA [Suspect]
     Active Substance: AFLIBERCEPT
     Dosage: 0.03 ML
     Route: 031
     Dates: start: 20210728, end: 20210728
  3. EYLEA [Suspect]
     Active Substance: AFLIBERCEPT
     Dosage: 0.03 ML
     Route: 031
     Dates: start: 20210827, end: 20210827
  4. EYLEA [Suspect]
     Active Substance: AFLIBERCEPT
     Dosage: 0.3 ML, LEFT EYE (OS), LAST APPLICATION
     Route: 031
     Dates: start: 20211006, end: 20211006

REACTIONS (4)
  - Vitreous opacities [Unknown]
  - Hypopyon [Recovering/Resolving]
  - Uveitis [Recovering/Resolving]
  - Multiple use of single-use product [Unknown]

NARRATIVE: CASE EVENT DATE: 20210630
